FAERS Safety Report 6091162-1 (Version None)
Quarter: 2009Q1

REPORT INFORMATION
  Report Type: 
  Country: None (occurrence: None)
  Receive Date: 20090225
  Receipt Date: 20090212
  Transmission Date: 20090719
  Serious: Yes (Other)
  Sender: FDA-Public Use
  Company Number: US-PFIZER INC-2009172707

PATIENT
  Sex: Female
  Weight: 72.574 kg

DRUGS (12)
  1. GEODON [Suspect]
  2. LITHIUM CARBONATE [Concomitant]
     Dosage: UNK
  3. SYNTHROID [Concomitant]
     Dosage: UNK
  4. LIBRAX [Concomitant]
     Dosage: UNK
  5. VALIUM [Concomitant]
  6. DARVOCET [Concomitant]
     Dosage: UNK
  7. PROMETHAZINE [Concomitant]
     Dosage: UNK
  8. FERROUS SULFATE TAB [Concomitant]
     Dosage: UNK
  9. NEURONTIN [Concomitant]
     Dosage: UNK
  10. OXYGEN [Concomitant]
     Dosage: UNK
  11. OTHER RESPIRATORY SYSTEM PRODUCTS [Concomitant]
     Dosage: UNK
  12. CORTICOSTEROIDS [Concomitant]
     Dosage: UNK

REACTIONS (11)
  - ANTIPSYCHOTIC DRUG LEVEL INCREASED [None]
  - BLINDNESS [None]
  - BLINDNESS UNILATERAL [None]
  - BLOOD THYROID STIMULATING HORMONE INCREASED [None]
  - MANIA [None]
  - NIGHT BLINDNESS [None]
  - OXYGEN SATURATION DECREASED [None]
  - SELF INJURIOUS BEHAVIOUR [None]
  - THERMAL BURN [None]
  - TREATMENT NONCOMPLIANCE [None]
  - WOUND INFECTION [None]
